FAERS Safety Report 11423607 (Version 1)
Quarter: 2015Q3

REPORT INFORMATION
  Report Type: Spontaneous
  Country: US (occurrence: US)
  Receive Date: 20150827
  Receipt Date: 20150827
  Transmission Date: 20151125
  Serious: No
  Sender: FDA-Public Use
  Company Number: US-JNJFOC-20150613990

PATIENT
  Age: 73 Year
  Sex: Female
  Weight: 74.84 kg

DRUGS (6)
  1. ACETAMINOPHEN. [Concomitant]
     Active Substance: ACETAMINOPHEN
     Indication: PAIN
     Route: 065
  2. INSULIN [Concomitant]
     Active Substance: INSULIN NOS
     Indication: TYPE 2 DIABETES MELLITUS
  3. CHILDRENS MOTRIN [Suspect]
     Active Substance: IBUPROFEN
     Indication: MUSCULOSKELETAL PAIN
     Dosage: SINCE LAST WEEK
     Route: 048
  4. ALLERGY MEDICATIONS [Concomitant]
     Active Substance: UNSPECIFIED INGREDIENT
     Indication: HYPERSENSITIVITY
  5. CHILDRENS MOTRIN [Suspect]
     Active Substance: IBUPROFEN
     Indication: BACK PAIN
     Dosage: SINCE LAST WEEK
     Route: 048
  6. CHILDRENS MOTRIN [Suspect]
     Active Substance: IBUPROFEN
     Indication: PAIN IN EXTREMITY
     Dosage: SINCE LAST WEEK
     Route: 048

REACTIONS (3)
  - Off label use [Unknown]
  - Drug administered to patient of inappropriate age [Unknown]
  - Therapeutic response unexpected [Unknown]
